FAERS Safety Report 5114028-X (Version None)
Quarter: 2006Q3

REPORT INFORMATION
  Report Type: 
  Country: None (occurrence: None)
  Receive Date: 20060925
  Receipt Date: 20060913
  Transmission Date: 20061208
  Serious: Yes (Hospitalization)
  Sender: FDA-Public Use
  Company Number: PHBS2006ES13897

PATIENT
  Age: 42 Year
  Sex: Female

DRUGS (4)
  1. TRILEPTAL [Suspect]
     Indication: BIPOLAR DISORDER
     Dosage: 300 MG, BID
     Route: 048
     Dates: end: 20050801
  2. HALOPERIDOL [Concomitant]
     Indication: BIPOLAR DISORDER
     Dosage: 34 MG/DAY
     Route: 048
     Dates: start: 20041028
  3. ORFIDAL [Concomitant]
     Dosage: 2 MG/DAY
     Route: 048
     Dates: start: 20041028
  4. AKINETON [Concomitant]
     Indication: BIPOLAR DISORDER
     Dosage: 3.5 MG/DAY
     Route: 048
     Dates: start: 20041028

REACTIONS (1)
  - INAPPROPRIATE ANTIDIURETIC HORMONE SECRETION [None]
